FAERS Safety Report 4375265-5 (Version None)
Quarter: 2004Q2

REPORT INFORMATION
  Report Type: 
  Country: None (occurrence: None)
  Receive Date: 20040608
  Receipt Date: 20040524
  Transmission Date: 20050107
  Serious: Yes (Death)
  Sender: FDA-Public Use
  Company Number: 2004S1001178

PATIENT
  Age: 85 Year
  Sex: Male

DRUGS (15)
  1. CLOZAPINE [Suspect]
     Indication: SCHIZOPHRENIA
     Dosage: 50MG Q HS ORAL
     Route: 048
     Dates: start: 20040319, end: 20040412
  2. FENTANYL [Concomitant]
  3. GENTAMICIN OPHTHALMIC DROPS [Concomitant]
  4. MEGESTROL SUSPENSION [Concomitant]
  5. NITRGLYCERIN TRANSDERMAL SYSTEM [Concomitant]
  6. METOCLOPRAMIDE [Concomitant]
  7. IPRATROPIUM BROMIDE [Concomitant]
  8. ALBUTEROL [Concomitant]
  9. POTASSIUM CHLORIDE [Concomitant]
  10. FUROSEMIDE [Concomitant]
  11. GABAPENTIN [Concomitant]
  12. PAROXETINE HCL [Concomitant]
  13. SIMVASTATIN [Concomitant]
  14. VERAPAMIL/TRANDOLAPRIL [Concomitant]
  15. BICALUTAMIDE [Concomitant]

REACTIONS (1)
  - DEATH [None]
